FAERS Safety Report 9681796 (Version 7)
Quarter: 2018Q1

REPORT INFORMATION
  Report Type: Spontaneous
  Country: US (occurrence: US)
  Receive Date: 20131111
  Receipt Date: 20180112
  Transmission Date: 20180509
  Serious: Yes (Hospitalization, Other)
  Sender: FDA-Public Use
  Company Number: US-009507513-1311USA001671

PATIENT
  Sex: Female
  Weight: 74.83 kg

DRUGS (3)
  1. FOSAMAX [Suspect]
     Active Substance: ALENDRONATE SODIUM
     Dosage: 70 MG, QW
     Route: 048
     Dates: start: 200102
  2. FOSAMAX [Suspect]
     Active Substance: ALENDRONATE SODIUM
     Indication: OSTEOPENIA
     Dosage: 10 MG, QD
     Route: 048
     Dates: start: 200010, end: 200101
  3. FOSAMAX [Suspect]
     Active Substance: ALENDRONATE SODIUM
     Indication: OSTEOPENIA
     Dosage: 70 MG, QW
     Route: 048
     Dates: start: 1998, end: 2003

REACTIONS (39)
  - Femur fracture [Recovering/Resolving]
  - Urinary retention [Recovered/Resolved]
  - Bone pain [Unknown]
  - Vitamin B12 deficiency [Unknown]
  - Hip arthroplasty [Unknown]
  - Chondrocalcinosis [Unknown]
  - Intramedullary rod insertion [Unknown]
  - Fear of closed spaces [Unknown]
  - Femur fracture [Recovering/Resolving]
  - Anaemia [Unknown]
  - Migraine [Unknown]
  - Periprosthetic fracture [Unknown]
  - Cholecystectomy [Unknown]
  - Hypertension [Unknown]
  - Pernicious anaemia [Unknown]
  - Drug hypersensitivity [Unknown]
  - Arthritis [Unknown]
  - Wrist fracture [Unknown]
  - Pain [Unknown]
  - Bone pain [Unknown]
  - Hyperlipidaemia [Unknown]
  - Respiratory failure [Recovered/Resolved]
  - Fibromyalgia [Unknown]
  - Chondritis [Unknown]
  - Osteoporosis [Unknown]
  - Muscular weakness [Unknown]
  - Shoulder operation [Unknown]
  - Hysterectomy [Unknown]
  - Osteoarthritis [Unknown]
  - Anaphylactic reaction [Unknown]
  - Pain [Not Recovered/Not Resolved]
  - Device failure [Unknown]
  - Acute myocardial infarction [Unknown]
  - Injury [Unknown]
  - Arthralgia [Unknown]
  - Musculoskeletal pain [Unknown]
  - Femur fracture [Unknown]
  - Pain [Unknown]
  - Mental status changes [Recovered/Resolved]

NARRATIVE: CASE EVENT DATE: 2001
